FAERS Safety Report 9223507 (Version 2)
Quarter: 2013Q2

REPORT INFORMATION
  Report Type: Spontaneous
  Country: US (occurrence: US)
  Receive Date: 20130410
  Receipt Date: 20130419
  Transmission Date: 20140414
  Serious: Yes (Death, Hospitalization, Other)
  Sender: FDA-Public Use
  Company Number: US-BAXTER-2013BAX012730

PATIENT
  Age: 74 Year
  Sex: Female

DRUGS (1)
  1. DIANEAL LOW CALCIUM [Suspect]
     Indication: PERITONEAL DIALYSIS
     Route: 033
     Dates: start: 2006, end: 20130331

REACTIONS (6)
  - Sepsis [Fatal]
  - Localised infection [Recovering/Resolving]
  - Localised infection [Recovering/Resolving]
  - Poor peripheral circulation [Recovering/Resolving]
  - Peritonitis [Unknown]
  - Hypotension [Unknown]
